FAERS Safety Report 7503924-1 (Version None)
Quarter: 2011Q2

REPORT INFORMATION
  Report Type: 
  Country: None (occurrence: None)
  Receive Date: 20110525
  Receipt Date: 20110520
  Transmission Date: 20111010
  Serious: Yes (Life-Threatening, Hospitalization)
  Sender: FDA-Public Use
  Company Number: JP-BRACCO-004585

PATIENT
  Sex: Male

DRUGS (6)
  1. INSULIN ASPART [Concomitant]
  2. BERAPROST SODIUM [Concomitant]
  3. PREDNISOLONE [Concomitant]
  4. IOPAMIDOL [Suspect]
     Indication: ANGIOGRAM
     Route: 042
     Dates: start: 20110225, end: 20110225
  5. IOPAMIDOL [Suspect]
     Indication: ARTERIOSCLEROSIS OBLITERANS
     Route: 042
     Dates: start: 20110225, end: 20110225
  6. PREDNISOLONE [Concomitant]

REACTIONS (3)
  - LACUNAR INFARCTION [None]
  - DISORIENTATION [None]
  - MEMORY IMPAIRMENT [None]
